FAERS Safety Report 17210459 (Version 1)
Quarter: 2019Q4

REPORT INFORMATION
  Report Type: Spontaneous
  Country: FR (occurrence: FR)
  Receive Date: 20191227
  Receipt Date: 20191227
  Transmission Date: 20200122
  Serious: Yes (Hospitalization)
  Sender: FDA-Public Use
  Company Number: FR-ANIPHARMA-2019-FR-000270

PATIENT
  Age: 71 Year
  Sex: Male
  Weight: 77 kg

DRUGS (10)
  1. FLUDEX [Concomitant]
     Route: 065
  2. FELODIPINE. [Concomitant]
     Active Substance: FELODIPINE
     Route: 065
  3. FOZITEC [Concomitant]
     Active Substance: FOSINOPRIL
     Route: 065
  4. CASODEX [Suspect]
     Active Substance: BICALUTAMIDE
     Indication: PROSTATE CANCER
     Dosage: 1 DF DAILY
     Route: 048
     Dates: start: 20191002, end: 20191102
  5. ADENURIC [Concomitant]
     Active Substance: FEBUXOSTAT
     Route: 065
  6. OZEMPIC [Suspect]
     Active Substance: SEMAGLUTIDE
     Dosage: 1 DF WEEK
     Route: 058
     Dates: start: 20190910
  7. ENANTONE LP [Suspect]
     Active Substance: LEUPROLIDE ACETATE
     Dosage: ONCE A WEEK
     Route: 051
     Dates: start: 20191014
  8. RILMENIDINE [Concomitant]
     Active Substance: RILMENIDINE
     Route: 065
  9. EZETROL [Concomitant]
     Active Substance: EZETIMIBE
     Route: 065
  10. SELOKEN L [Concomitant]
     Active Substance: METOPROLOL TARTRATE
     Route: 065

REACTIONS (1)
  - Otitis media [Not Recovered/Not Resolved]

NARRATIVE: CASE EVENT DATE: 201910
